FAERS Safety Report 4502905-X (Version None)
Quarter: 2004Q4

REPORT INFORMATION
  Report Type: 
  Country: None (occurrence: None)
  Receive Date: 20041112
  Receipt Date: 20041104
  Transmission Date: 20050328
  Serious: No
  Sender: FDA-Public Use
  Company Number: 04H-163-0279590-00

PATIENT

DRUGS (1)
  1. ATROPINE SULFATE [Suspect]
     Dates: start: 20041001

REACTIONS (2)
  - HEART RATE DECREASED [None]
  - MEDICATION ERROR [None]
